FAERS Safety Report 7055901-5 (Version None)
Quarter: 2010Q4

REPORT INFORMATION
  Report Type: 
  Country: None (occurrence: None)
  Receive Date: 20101021
  Receipt Date: 20101014
  Transmission Date: 20110411
  Serious: Yes (Other)
  Sender: FDA-Public Use
  Company Number: US-US-EMD SERONO, INC.-7022547

PATIENT
  Sex: Female

DRUGS (3)
  1. REBIF [Suspect]
     Indication: MULTIPLE SCLEROSIS
     Route: 058
     Dates: start: 20100415
  2. ACETAMINOPHEN [Concomitant]
     Indication: PREMEDICATION
  3. ALEVE (CAPLET) [Concomitant]
     Indication: PREMEDICATION
     Dates: end: 20100101

REACTIONS (5)
  - EPISTAXIS [None]
  - FATIGUE [None]
  - HYPERTENSION [None]
  - INJECTION SITE DISCOLOURATION [None]
  - INJECTION SITE DISCOMFORT [None]
